FAERS Safety Report 9679014 (Version 1)
Quarter: 2013Q4

REPORT INFORMATION
  Report Type: Spontaneous
  Country: US (occurrence: None)
  Receive Date: 20131107
  Receipt Date: 20131107
  Transmission Date: 20140711
  Serious: Yes (Hospitalization)
  Sender: FDA-Public Use
  Company Number: CIO13064805

PATIENT
  Sex: Male

DRUGS (1)
  1. NYQUIL, FORM/VERSION/FLAVOR UNKNOWN(ETHANOL UNKNOWN UNK, CHLORPHENAMINE MALEATE UNKNOWN UNK, DEXTROMETHORPHAN HYDROBROMIDE UNKNOWN UNK, DIPHENHYDRAMINE HYDROCHLORIDE UNKNOWN UNK, DOXYLAMINE SUCCINATE UNKNOWN UNK, PARACETAMOL UNKNOWN UNK, PSEUDOEPHEDRINE [Suspect]
     Dosage: HAD A FEW DOSES, ORAL
     Route: 048

REACTIONS (2)
  - Loss of consciousness [None]
  - Overdose [None]
